FAERS Safety Report 11214566 (Version 1)
Quarter: 2015Q2

REPORT INFORMATION
  Report Type: Spontaneous
  Country: US (occurrence: None)
  Receive Date: 20150608
  Receipt Date: 20150608
  Transmission Date: 20150821
  Serious: No
  Sender: FDA-Public Use
  Company Number: HYP201504-000035

PATIENT
  Age: 4 Year
  Sex: Male
  Weight: 17 kg

DRUGS (2)
  1. CYCLINEX 2 (ASCORBIC ACID, BIOTIN, CALCIUM, CHLORIDE, CHOLINE, CHROMIUM, COPPER, FOLIC ACID, INOSITOL, IODINE, IRON, LEVOCARNITINE, LINOLEIC ACID, MAGNESIUM, MANGANESE, MOLYBDENUM, NICOTINIC ACID, PANTOTHENIC ACID, PHOSPHORUS, POTASSIUM, PYRIDOXINE HYDROCHLORIDE, RETINOL, RIBOFLAVIN, SELENIUM, SODIUM, THIAMINE, VITAMIN B12 NOS, VITAMIN D NOS, VITAMIN E NOS, VITAMIN K NOS, ZINC) [Concomitant]
  2. RAVICTI [Suspect]
     Active Substance: GLYCEROL PHENYLBUTYRATE
     Indication: ORNITHINE TRANSCARBAMOYLASE DEFICIENCY

REACTIONS (6)
  - Dizziness [None]
  - Ammonia increased [None]
  - Diarrhoea [None]
  - Decreased appetite [None]
  - Weight decreased [None]
  - Somnolence [None]

NARRATIVE: CASE EVENT DATE: 20150325
